FAERS Safety Report 6416146-2 (Version None)
Quarter: 2009Q4

REPORT INFORMATION
  Report Type: 
  Country: None (occurrence: None)
  Receive Date: 20091023
  Receipt Date: 20091008
  Transmission Date: 20100525
  Serious: Yes (Congenital Anomaly)
  Sender: FDA-Public Use
  Company Number: 8047071

PATIENT
  Sex: Male
  Weight: 2.66 kg

DRUGS (4)
  1. KEPPRA [Suspect]
     Dosage: 2000 MG 2/D TRP
     Route: 064
     Dates: start: 20081116
  2. VITAMIN TAB [Concomitant]
  3. FOLIC ACID [Concomitant]
  4. MUCINEX [Concomitant]

REACTIONS (3)
  - MATERNAL DRUGS AFFECTING FOETUS [None]
  - NERVOUS SYSTEM DISORDER [None]
  - ULTRASOUND ANTENATAL SCREEN ABNORMAL [None]
